FAERS Safety Report 4277242-1 (Version None)
Quarter: 2004Q1

REPORT INFORMATION
  Report Type: 
  Country: None (occurrence: None)
  Receive Date: 20040120
  Receipt Date: 20040120
  Transmission Date: 20041129
  Serious: Yes (Hospitalization)
  Sender: FDA-Public Use
  Company Number: None

PATIENT
  Age: 83 Year
  Sex: Male
  Weight: 62.8 kg

DRUGS (4)
  1. HYDROCODONE [Suspect]
  2. DILTIAZEM [Concomitant]
  3. TERAZOSIN HCL [Concomitant]
  4. PROMETHAZINE [Concomitant]

REACTIONS (2)
  - CONFUSIONAL STATE [None]
  - MENTAL STATUS CHANGES [None]
